FAERS Safety Report 10208950 (Version 1)
Quarter: 2014Q2

REPORT INFORMATION
  Report Type: Spontaneous
  Country: JP (occurrence: JP)
  Receive Date: 20140530
  Receipt Date: 20140530
  Transmission Date: 20141212
  Serious: Yes (Hospitalization)
  Sender: FDA-Public Use
  Company Number: JP-B.I. PHARMACEUTICALS,INC./RIDGEFIELD-2014-BI-24341NB

PATIENT
  Sex: 0

DRUGS (4)
  1. SPIRIVA [Suspect]
     Indication: PRODUCT USED FOR UNKNOWN INDICATION
     Route: 055
  2. MEPTIN [Concomitant]
     Route: 065
  3. PULMICORT [Concomitant]
     Route: 065
  4. ONBREZ [Concomitant]
     Route: 065

REACTIONS (2)
  - Pneumothorax [Unknown]
  - Muscle spasms [Unknown]
